FAERS Safety Report 15558599 (Version 1)
Quarter: 2018Q4

REPORT INFORMATION
  Report Type: Report from Study
  Country: US (occurrence: US)
  Receive Date: 20181029
  Receipt Date: 20181029
  Transmission Date: 20190205
  Serious: No
  Sender: FDA-Public Use
  Company Number: PHEH2018US044475

PATIENT
  Sex: Female

DRUGS (1)
  1. OMNITROPE [Suspect]
     Active Substance: SOMATROPIN
     Indication: PRODUCT USED FOR UNKNOWN INDICATION
     Route: 065

REACTIONS (14)
  - Influenza like illness [Unknown]
  - Peripheral coldness [Unknown]
  - Dizziness [Unknown]
  - Blood urine present [Unknown]
  - Injection site bruising [Unknown]
  - Headache [Unknown]
  - Injection site discomfort [Unknown]
  - Nasopharyngitis [Unknown]
  - Heart rate increased [Unknown]
  - Emotional poverty [Unknown]
  - Pyrexia [Unknown]
  - Confusional state [Unknown]
  - Chromaturia [Unknown]
  - Injection site pain [Unknown]
